FAERS Safety Report 8487442-2 (Version None)
Quarter: 2012Q3

REPORT INFORMATION
  Report Type: 
  Country: None (occurrence: None)
  Receive Date: 20120705
  Receipt Date: 20120622
  Transmission Date: 20120928
  Serious: Yes (Hospitalization, Other)
  Sender: FDA-Public Use
  Company Number: FR-VERTEX PHARMACEUTICALS INC.-000000000000000418

PATIENT
  Sex: Female
  Weight: 55 kg

DRUGS (4)
  1. COPEGUS [Concomitant]
     Indication: HEPATITIS C
     Dosage: 400-0-600 MG
     Dates: start: 20120105
  2. NEORECORMON [Concomitant]
  3. PEGASYS [Concomitant]
     Indication: HEPATITIS C
     Dates: start: 20120105
  4. INCIVO (TELAPREVIR) [Suspect]
     Indication: HEPATITIS C
     Dosage: DOSAGE FORM: TABLET
     Route: 048
     Dates: start: 20120105, end: 20120327

REACTIONS (5)
  - MYALGIA [None]
  - ANAEMIA [None]
  - HOSPITALISATION [None]
  - HAEMORRHOIDS [None]
  - RECTAL HAEMORRHAGE [None]
